FAERS Safety Report 9663703 (Version 1)
Quarter: 2013Q4

REPORT INFORMATION
  Report Type: Spontaneous
  Country: FR (occurrence: FR)
  Receive Date: 20131101
  Receipt Date: 20131101
  Transmission Date: 20140711
  Serious: Yes (Other)
  Sender: FDA-Public Use
  Company Number: FR-BAYER-2013-131677

PATIENT
  Age: 73 Year
  Sex: Male

DRUGS (18)
  1. CIFLOX [Suspect]
     Indication: DERMO-HYPODERMITIS
     Dosage: UNK
     Route: 042
     Dates: start: 20130517, end: 20130519
  2. CIFLOX [Suspect]
     Indication: DERMO-HYPODERMITIS
     Dosage: 400 MG, QD
     Route: 042
     Dates: start: 20130531
  3. CIFLOX [Suspect]
     Indication: DERMO-HYPODERMITIS
     Dosage: 750 MG, BID
     Route: 048
     Dates: start: 20130601, end: 20130602
  4. CIFLOX [Suspect]
     Indication: DERMO-HYPODERMITIS
     Dosage: 500 MG, BID
     Route: 048
     Dates: start: 20130603, end: 20130718
  5. FORTUM [Suspect]
     Indication: DERMO-HYPODERMITIS
     Dosage: 2 G, UNK
     Route: 042
     Dates: start: 20130531
  6. FORTUM [Suspect]
     Indication: DERMO-HYPODERMITIS
     Dosage: 3 G, QD
     Route: 042
     Dates: start: 20130601
  7. FORTUM [Suspect]
     Indication: DERMO-HYPODERMITIS
     Dosage: 4 G, QD
     Dates: start: 20130602
  8. FORTUM [Suspect]
     Indication: DERMO-HYPODERMITIS
     Dosage: 3 G, QD
     Dates: start: 20130603
  9. FORTUM [Suspect]
     Indication: DERMO-HYPODERMITIS
     Dosage: 2.5 G, QD
     Dates: start: 20130604, end: 201306
  10. TEMERIT [Concomitant]
  11. ESIDREX [Concomitant]
  12. APROVEL [Concomitant]
  13. AVODART [Concomitant]
  14. XATRAL [Concomitant]
  15. AMLOR [Concomitant]
  16. LOXEN [Concomitant]
  17. LASILIX [Concomitant]
  18. TAZOCILLINE [Concomitant]
     Indication: SEPTIC SHOCK
     Dosage: UNK
     Dates: start: 20130517, end: 20130531

REACTIONS (3)
  - Logorrhoea [Recovered/Resolved]
  - Agitation [Recovered/Resolved]
  - Hallucination [Recovered/Resolved]
